FAERS Safety Report 19056702 (Version 2)
Quarter: 2022Q2

REPORT INFORMATION
  Report Type: Spontaneous
  Country: US (occurrence: US)
  Receive Date: 20210325
  Receipt Date: 20220614
  Transmission Date: 20220721
  Serious: Yes (Other)
  Sender: FDA-Public Use
  Company Number: US-BAUSCH-BL-2021-002616

PATIENT
  Age: 75 Year
  Sex: Female

DRUGS (15)
  1. PROPRANOLOL HYDROCHLORIDE [Suspect]
     Active Substance: PROPRANOLOL HYDROCHLORIDE
     Indication: Postural tremor
     Dosage: 20 MG, TID (3/DAY)
     Route: 065
     Dates: start: 201501, end: 2015
  2. PROPRANOLOL HYDROCHLORIDE [Suspect]
     Active Substance: PROPRANOLOL HYDROCHLORIDE
     Indication: Tremor
     Dosage: 10 MG, UNK
     Dates: start: 201307
  3. PROPRANOLOL HYDROCHLORIDE [Suspect]
     Active Substance: PROPRANOLOL HYDROCHLORIDE
     Indication: Parkinsonism
  4. PROPRANOLOL HYDROCHLORIDE [Suspect]
     Active Substance: PROPRANOLOL HYDROCHLORIDE
     Indication: Resting tremor
  5. PROPRANOLOL HYDROCHLORIDE [Suspect]
     Active Substance: PROPRANOLOL HYDROCHLORIDE
     Indication: Off label use
  6. TRAZODONE [Concomitant]
     Active Substance: TRAZODONE HYDROCHLORIDE
     Indication: Dyskinesia
     Dosage: NIGHTLY
  7. AMANTADINE [Concomitant]
     Active Substance: AMANTADINE
     Indication: Resting tremor
     Dates: start: 201501
  8. PRIMIDONE [Concomitant]
     Active Substance: PRIMIDONE
     Indication: Parkinsonism
     Dates: start: 201501
  9. FLUOXETINE [Concomitant]
     Active Substance: FLUOXETINE HYDROCHLORIDE
     Indication: Dyskinesia
     Dosage: 50 MG
  10. PRAMIPEXOLE [Concomitant]
     Active Substance: PRAMIPEXOLE
     Indication: Postural tremor
     Dates: start: 201501
  11. TETRABENAZINE [Concomitant]
     Active Substance: TETRABENAZINE
     Indication: Tardive dyskinesia
     Dosage: 12.5 MG
     Dates: start: 201106, end: 2011
  12. TETRABENAZINE [Concomitant]
     Active Substance: TETRABENAZINE
     Dosage: 12.5 MG
     Dates: start: 2011
  13. SINEMET [Concomitant]
     Active Substance: CARBIDOPA\LEVODOPA
     Indication: Resting tremor
     Dates: start: 201501
  14. QUETIAPINE [Concomitant]
     Active Substance: QUETIAPINE
     Indication: Dyskinesia
     Dosage: 200 MG
     Dates: start: 2011
  15. QUETIAPINE [Concomitant]
     Active Substance: QUETIAPINE
     Dosage: 50 MG
     Dates: start: 201101

REACTIONS (5)
  - Depression [Unknown]
  - Off label use [Unknown]
  - Drug ineffective for unapproved indication [Unknown]
  - Product use issue [Unknown]
  - Inappropriate schedule of product administration [Unknown]

NARRATIVE: CASE EVENT DATE: 20150101
